FAERS Safety Report 8137324-0 (Version None)
Quarter: 2012Q1

REPORT INFORMATION
  Report Type: 
  Country: None (occurrence: None)
  Receive Date: 20120103
  Receipt Date: 20110922
  Transmission Date: 20120608
  Serious: No
  Sender: FDA-Public Use
  Company Number: AE-2011-001496

PATIENT
  Age: 52 Year
  Sex: Male

DRUGS (7)
  1. METOPROLOL TARTRATE [Concomitant]
  2. HYDROCORTONE [Concomitant]
  3. PEGINTERFERON (PEGINTERFERON ALFA-2A) [Concomitant]
  4. SOMA [Concomitant]
  5. METHIMAZOLE [Concomitant]
  6. INCIVEK [Suspect]
     Dosage: 2250 MG (750 MG, 3 IN 1 D), ORAL
     Route: 048
     Dates: start: 20110829
  7. RIBAVIRIN [Concomitant]

REACTIONS (1)
  - RASH [None]
